FAERS Safety Report 18521127 (Version 1)
Quarter: 2020Q4

REPORT INFORMATION
  Report Type: Report from Study
  Country: None (occurrence: US)
  Receive Date: 20201119
  Receipt Date: 20201119
  Transmission Date: 20210114
  Serious: Yes (Hospitalization, Other)
  Sender: FDA-Public Use
  Company Number: US-MELINTA THERAPEUTICS, INC-US-MLNT-20-00303

PATIENT
  Age: 62 Year
  Sex: Male
  Weight: 102.6 kg

DRUGS (2)
  1. ORBACTIV [Suspect]
     Active Substance: ORITAVANCIN
     Indication: OSTEOMYELITIS ACUTE
     Dosage: NOT PROVIDED
     Route: 041
     Dates: start: 20200926, end: 20200926
  2. ORBACTIV [Suspect]
     Active Substance: ORITAVANCIN
     Dosage: NOT PROVIDED.
     Route: 041
     Dates: start: 20201012, end: 20201012

REACTIONS (8)
  - Hypertension [Unknown]
  - Off label use [Unknown]
  - Chills [Unknown]
  - Groin pain [Unknown]
  - Chest pain [Unknown]
  - Pain in extremity [Unknown]
  - Dizziness [Unknown]
  - Back pain [Unknown]

NARRATIVE: CASE EVENT DATE: 20200926
